FAERS Safety Report 6324914-0 (Version None)
Quarter: 2009Q3

REPORT INFORMATION
  Report Type: 
  Country: None (occurrence: None)
  Receive Date: 20090821
  Receipt Date: 20090805
  Transmission Date: 20100115
  Serious: Yes (Death)
  Sender: FDA-Public Use
  Company Number: 8020046

PATIENT
  Age: 48 Year
  Sex: Female
  Weight: 62 kg

DRUGS (3)
  1. PREDNISOLONE [Suspect]
     Dosage: 7.5 MG 1 D
     Dates: start: 20031201
  2. ENBREL [Suspect]
     Dosage: 25 MG 2 W SC
     Route: 058
     Dates: start: 20030919, end: 20060310
  3. CORTICOSTEROIDS [Concomitant]

REACTIONS (2)
  - CEREBRAL HAEMORRHAGE [None]
  - FALL [None]
